FAERS Safety Report 15084657 (Version 1)
Quarter: 2018Q2

REPORT INFORMATION
  Report Type: Spontaneous
  Country: US (occurrence: US)
  Receive Date: 20180628
  Receipt Date: 20180628
  Transmission Date: 20180711
  Serious: Yes (Other)
  Sender: FDA-Public Use
  Company Number: US-TEVA-2018-US-913830

PATIENT
  Age: 46 Year
  Sex: Female

DRUGS (3)
  1. 6-MERCAPTOPURINE [Suspect]
     Active Substance: MERCAPTOPURINE
     Indication: GASTROINTESTINAL DISORDER
     Route: 065
  2. BUDESONIDE. [Suspect]
     Active Substance: BUDESONIDE
     Indication: GASTROINTESTINAL DISORDER
     Route: 065
  3. MESALAZINE [Suspect]
     Active Substance: MESALAMINE
     Indication: GASTROINTESTINAL DISORDER
     Route: 065

REACTIONS (2)
  - Swelling [Recovering/Resolving]
  - Leukopenia [Unknown]
